FAERS Safety Report 5726760-5 (Version None)
Quarter: 2008Q2

REPORT INFORMATION
  Report Type: 
  Country: None (occurrence: None)
  Receive Date: 20080502
  Receipt Date: 20080423
  Transmission Date: 20081010
  Serious: Yes (Congenital Anomaly)
  Sender: FDA-Public Use
  Company Number: GB-ABBOTT-05P-167-0311344-00

PATIENT
  Sex: Male

DRUGS (2)
  1. VALPROATE SODIUM [Suspect]
     Indication: DRUG EXPOSURE DURING PREGNANCY
     Route: 064
  2. VALPROATE SODIUM [Suspect]

REACTIONS (28)
  - ABNORMAL BEHAVIOUR [None]
  - ANTISOCIAL BEHAVIOUR [None]
  - ARACHNODACTYLY [None]
  - BODY DYSMORPHIC DISORDER [None]
  - BONE DISORDER [None]
  - CONGENITAL CLEFT HAND [None]
  - CONGENITAL HAIR DISORDER [None]
  - CONGENITAL HAND MALFORMATION [None]
  - CONGENITAL NAIL DISORDER [None]
  - CONGENITAL NOSE MALFORMATION [None]
  - CONGENITAL ORAL MALFORMATION [None]
  - CRYPTORCHISM [None]
  - DEVELOPMENTAL DELAY [None]
  - DISTURBANCE IN ATTENTION [None]
  - DRUG EXPOSURE DURING PREGNANCY [None]
  - DYSMORPHISM [None]
  - FINE MOTOR DELAY [None]
  - FOETAL ANTICONVULSANT SYNDROME [None]
  - FOOT DEFORMITY [None]
  - GAIT DISTURBANCE [None]
  - HAIR GROWTH ABNORMAL [None]
  - HAIR TEXTURE ABNORMAL [None]
  - HEARING IMPAIRED [None]
  - LIP DISORDER [None]
  - MOVEMENT DISORDER [None]
  - PROMINENT EPICANTHAL FOLDS [None]
  - SPEECH DISORDER DEVELOPMENTAL [None]
  - SUPERNUMERARY NIPPLE [None]
